FAERS Safety Report 9691028 (Version 1)
Quarter: 2013Q4

REPORT INFORMATION
  Report Type: Spontaneous
  Country: IE (occurrence: IE)
  Receive Date: 20131115
  Receipt Date: 20131115
  Transmission Date: 20140711
  Serious: Yes (Other)
  Sender: FDA-Public Use
  Company Number: IE-ELI_LILLY_AND_COMPANY-GB201311001119

PATIENT
  Sex: Female

DRUGS (2)
  1. HUMULIN 30% REGULAR, 70% NPH [Suspect]
     Indication: DIABETES MELLITUS
     Dosage: 44 U, EACH MORNING
  2. HUMULIN 30% REGULAR, 70% NPH [Suspect]
     Dosage: 42 U, EACH EVENING
     Route: 065

REACTIONS (1)
  - Blood glucose increased [Not Recovered/Not Resolved]
